FAERS Safety Report 4476648-5 (Version None)
Quarter: 2004Q4

REPORT INFORMATION
  Report Type: 
  Country: None (occurrence: None)
  Receive Date: 20041015
  Receipt Date: 20041015
  Transmission Date: 20050328
  Serious: Yes (Other)
  Sender: FDA-Public Use
  Company Number: None

PATIENT
  Age: 42 Year
  Sex: Male
  Weight: 86.1834 kg

DRUGS (2)
  1. AUGMENTIN '125' [Suspect]
     Indication: INFLUENZA
     Dosage: 125 MG ORAL
     Route: 048
     Dates: start: 20041008, end: 20041008
  2. AUGMENTIN '125' [Suspect]
     Indication: NASOPHARYNGITIS
     Dosage: 125 MG ORAL
     Route: 048
     Dates: start: 20041008, end: 20041008

REACTIONS (4)
  - ABDOMINAL PAIN UPPER [None]
  - DIARRHOEA [None]
  - NAUSEA [None]
  - VOMITING [None]
